FAERS Safety Report 21920971 (Version 1)
Quarter: 2023Q1

REPORT INFORMATION
  Report Type: Spontaneous
  Country: US (occurrence: None)
  Receive Date: 20230127
  Receipt Date: 20230127
  Transmission Date: 20230418
  Serious: No
  Sender: FDA-Public Use
  Company Number: 2023A020168

PATIENT
  Age: 847 Month
  Sex: Female

DRUGS (2)
  1. FASENRA [Suspect]
     Active Substance: BENRALIZUMAB
     Dosage: EVERY 4 WEEKS FOR THE FIRST 3 DOSES, FOLLOWED BY ONCE EVERY 8 WEEKS THEREAFTER
     Route: 058
     Dates: start: 202211
  2. FASENRA [Suspect]
     Active Substance: BENRALIZUMAB
     Dosage: 3RD DOSE
     Route: 058
     Dates: start: 20230119

REACTIONS (6)
  - SARS-CoV-2 test positive [Unknown]
  - Muscle spasms [Unknown]
  - Cough [Unknown]
  - Dyspnoea [Unknown]
  - Fatigue [Not Recovered/Not Resolved]
  - Oropharyngeal pain [Unknown]

NARRATIVE: CASE EVENT DATE: 20221201
